FAERS Safety Report 4313771-X (Version None)
Quarter: 2004Q1

REPORT INFORMATION
  Report Type: 
  Country: None (occurrence: None)
  Receive Date: 20040305
  Receipt Date: 20040225
  Transmission Date: 20041129
  Serious: Yes (Other)
  Sender: FDA-Public Use
  Company Number: HQWYE367026FEB04

PATIENT
  Age: 67 Year
  Sex: Female
  Weight: 127.12 kg

DRUGS (9)
  1. EFFEXOR XR [Suspect]
     Indication: DEPRESSION
     Dosage: 150 MG 1X PER 1 DAY, ORAL
     Route: 048
  2. FUROSEMIDE [Concomitant]
  3. CAPTOPRIL [Concomitant]
  4. KLOR-CON [Concomitant]
  5. DIGOXIN [Concomitant]
  6. HUMULIN 70/30 [Concomitant]
  7. HUMULIN R [Concomitant]
  8. ASPIRIN [Concomitant]
  9. CELEBREX [Concomitant]

REACTIONS (3)
  - DISORIENTATION [None]
  - FALL [None]
  - STARING [None]
